FAERS Safety Report 4498533-5 (Version None)
Quarter: 2004Q4

REPORT INFORMATION
  Report Type: 
  Country: None (occurrence: None)
  Receive Date: 20041111
  Receipt Date: 20041101
  Transmission Date: 20050328
  Serious: Yes (Other)
  Sender: FDA-Public Use
  Company Number: DE-JNJFOC-20041007653

PATIENT
  Age: 42 Year
  Sex: Male

DRUGS (1)
  1. REMICADE [Suspect]
     Route: 042

REACTIONS (3)
  - DYSPNOEA EXERTIONAL [None]
  - PLEURAL FIBROSIS [None]
  - PLEURISY [None]
